FAERS Safety Report 13312093 (Version 1)
Quarter: 2017Q1

REPORT INFORMATION
  Report Type: Report from Study
  Country: US (occurrence: US)
  Receive Date: 20170309
  Receipt Date: 20170309
  Transmission Date: 20170428
  Serious: Yes (Death)
  Sender: FDA-Public Use
  Company Number: US-BAYER-2017-041354

PATIENT
  Age: 66 Year
  Sex: Male
  Weight: 68.03 kg

DRUGS (1)
  1. ADEMPAS [Suspect]
     Active Substance: RIOCIGUAT
     Indication: PULMONARY ARTERIAL HYPERTENSION
     Dosage: 0.5 MG, TID
     Route: 048
     Dates: start: 20170213

REACTIONS (2)
  - Airway secretion clearance therapy [Unknown]
  - Death [Fatal]

NARRATIVE: CASE EVENT DATE: 20170219
